FAERS Safety Report 23438671 (Version 1)
Quarter: 2024Q1

REPORT INFORMATION
  Report Type: Spontaneous
  Country: US (occurrence: US)
  Receive Date: 20240124
  Receipt Date: 20240124
  Transmission Date: 20240410
  Serious: No
  Sender: FDA-Public Use
  Company Number: US-SA-SAC20240116001369

PATIENT
  Age: 54 Year
  Sex: Male
  Weight: 88.45 kg

DRUGS (6)
  1. DUPIXENT [Suspect]
     Active Substance: DUPILUMAB
     Indication: Nasal polyps
     Dosage: 300 MG, QOW
     Route: 058
     Dates: start: 2022
  2. DUPIXENT [Suspect]
     Active Substance: DUPILUMAB
     Indication: Sinusitis
  3. SYMBICORT [Concomitant]
     Active Substance: BUDESONIDE\FORMOTEROL FUMARATE DIHYDRATE
     Dosage: 80 UG
  4. SYMBICORT [Concomitant]
     Active Substance: BUDESONIDE\FORMOTEROL FUMARATE DIHYDRATE
     Dosage: 160 UG
  5. FLUTICASONE PROPIONATE [Concomitant]
     Active Substance: FLUTICASONE PROPIONATE
     Dosage: UNK
  6. TAMSULOSIN HYDROCHLORIDE [Concomitant]
     Active Substance: TAMSULOSIN HYDROCHLORIDE
     Dosage: UNK

REACTIONS (17)
  - COVID-19 [Recovering/Resolving]
  - Post-acute COVID-19 syndrome [Recovering/Resolving]
  - Cough [Recovering/Resolving]
  - Lethargy [Recovering/Resolving]
  - Dizziness [Recovering/Resolving]
  - Impaired quality of life [Recovering/Resolving]
  - Facial pain [Recovering/Resolving]
  - Condition aggravated [Recovering/Resolving]
  - Ear pain [Recovering/Resolving]
  - Condition aggravated [Recovering/Resolving]
  - Ear discomfort [Recovering/Resolving]
  - Condition aggravated [Recovering/Resolving]
  - Facial discomfort [Recovering/Resolving]
  - Condition aggravated [Recovering/Resolving]
  - Migraine [Recovering/Resolving]
  - Injection site bruising [Recovering/Resolving]
  - Product use in unapproved indication [Unknown]

NARRATIVE: CASE EVENT DATE: 20220101
